FAERS Safety Report 4535903-0 (Version None)
Quarter: 2004Q4

REPORT INFORMATION
  Report Type: 
  Country: None (occurrence: None)
  Receive Date: 20041223
  Receipt Date: 20041213
  Transmission Date: 20050328
  Serious: Yes (Hospitalization, Other)
  Sender: FDA-Public Use
  Company Number: US-JNJFOC-20041203963

PATIENT
  Sex: Female
  Weight: 58 kg

DRUGS (2)
  1. REMICADE [Suspect]
     Indication: RHEUMATOID ARTHRITIS
     Dosage: 15 INFUSIONS
     Route: 042
  2. METHOTREXATE [Concomitant]

REACTIONS (5)
  - HALLUCINATION [None]
  - HODGKIN'S DISEASE [None]
  - LYMPHOMA [None]
  - MENINGITIS ASEPTIC [None]
  - PARANEOPLASTIC SYNDROME [None]
